FAERS Safety Report 9557990 (Version 3)
Quarter: 2013Q4

REPORT INFORMATION
  Report Type: Report from Study
  Country: US (occurrence: US)
  Receive Date: 20130926
  Receipt Date: 20131010
  Transmission Date: 20140711
  Serious: Yes (Other)
  Sender: FDA-Public Use
  Company Number: PHEH2013US017839

PATIENT
  Age: 52 Year
  Sex: Female

DRUGS (5)
  1. EXTAVIA [Suspect]
     Indication: MULTIPLE SCLEROSIS
     Dosage: 0.25 MG, QOD
     Route: 058
  2. NORTRIPTYLINE [Concomitant]
     Dosage: UNK UKN, UNK
  3. MULTI-VIT [Concomitant]
     Dosage: UNK UKN, UNK
  4. VITAMIN C [Concomitant]
     Dosage: UNK UKN, UNK
  5. VITAMIN D [Concomitant]
     Dosage: UNK UKN, UNK

REACTIONS (14)
  - Fall [Recovered/Resolved]
  - Foot fracture [Recovered/Resolved]
  - Erythema [Recovered/Resolved]
  - Tremor [Recovered/Resolved]
  - Hyperhidrosis [Recovered/Resolved]
  - Chills [Recovered/Resolved]
  - Influenza like illness [Recovered/Resolved]
  - Injection site pain [Recovered/Resolved]
  - Injection site erythema [Recovered/Resolved]
  - Injection site haemorrhage [Recovered/Resolved]
  - Injection site bruising [Recovered/Resolved]
  - Injection site discolouration [Recovered/Resolved]
  - Incorrect dose administered [Unknown]
  - Overdose [Unknown]
